FAERS Safety Report 6708710-8 (Version None)
Quarter: 2010Q2

REPORT INFORMATION
  Report Type: 
  Country: None (occurrence: None)
  Receive Date: 20100503
  Receipt Date: 20100426
  Transmission Date: 20101027
  Serious: Yes (Death, Other)
  Sender: FDA-Public Use
  Company Number: US-AMGEN-QUU406462

PATIENT
  Sex: Female
  Weight: 124.9 kg

DRUGS (7)
  1. NPLATE [Suspect]
     Indication: IDIOPATHIC THROMBOCYTOPENIC PURPURA
     Route: 042
     Dates: start: 20090528, end: 20090727
  2. CATAPRES [Concomitant]
     Dates: start: 20080505, end: 20090808
  3. LORTAB [Concomitant]
     Dates: start: 20080505, end: 20090808
  4. LASIX [Concomitant]
     Dates: start: 20090423, end: 20090508
  5. POTASSIUM [Concomitant]
     Dates: start: 20090428, end: 20090808
  6. AMBIEN [Concomitant]
     Dates: start: 20090428, end: 20090808
  7. ULTRAM [Concomitant]
     Dates: start: 20090713, end: 20090808

REACTIONS (5)
  - ASCITES [None]
  - CARDIO-RESPIRATORY ARREST [None]
  - HEPATIC CIRRHOSIS [None]
  - INFECTION [None]
  - WHITE BLOOD CELL COUNT INCREASED [None]
